FAERS Safety Report 7944864-3 (Version None)
Quarter: 2011Q4

REPORT INFORMATION
  Report Type: 
  Country: None (occurrence: None)
  Receive Date: 20111129
  Receipt Date: 20110623
  Transmission Date: 20120403
  Serious: Yes (Hospitalization)
  Sender: FDA-Public Use
  Company Number: US-MYLANLABS-2011S1008326

PATIENT
  Age: 78 Year
  Sex: Female
  Weight: 59.42 kg

DRUGS (4)
  1. ATACAND HCT [Concomitant]
  2. LABETALOL HCL [Concomitant]
  3. AMLODIPINE BESYLATE [Suspect]
     Indication: HYPERTENSION
     Route: 048
     Dates: start: 20110106, end: 20110303
  4. VITAMIN TAB [Concomitant]

REACTIONS (3)
  - SYNCOPE [None]
  - HYPERTENSION [None]
  - DRUG INEFFECTIVE [None]
